FAERS Safety Report 8531873 (Version 3)
Quarter: 2013Q3

REPORT INFORMATION
  Report Type: Report from Study
  Country: US (occurrence: US)
  Receive Date: 20120426
  Receipt Date: 20130813
  Transmission Date: 20140515
  Serious: Yes (Death, Hospitalization)
  Sender: FDA-Public Use
  Company Number: US-ROCHE-1058781

PATIENT
  Age: 67 Year
  Sex: Female
  Weight: 78 kg

DRUGS (12)
  1. TRASTUZUMAB [Suspect]
     Indication: BREAST CANCER
     Dosage: LOADING DOSE: OVER 90 MIN ON DAY 1, WK 1 ONLY
     Route: 042
     Dates: start: 20120103
  2. TRASTUZUMAB [Suspect]
     Dosage: OVER 30 MIN WEEKLY  X 11 DOSES
     Route: 042
  3. TRASTUZUMAB [Suspect]
     Dosage: OVER 30-90 MIN ON DAY 1 Q 3 WKS UNTIL 1 YR AFTER 1ST TRASTUZUMAB DOSE
     Route: 042
     Dates: start: 20111108
  4. DOXORUBICIN [Suspect]
     Indication: BREAST CANCER
     Dosage: OVER 15 MIN ON DAY 1 X 4 CYCLES (CYCLES 1-4)
     Route: 042
     Dates: start: 20111108, end: 20111220
  5. CYCLOPHOSPHAMIDE [Suspect]
     Indication: BREAST CANCER
     Dosage: OVER 30 MIN ON DAY 1 X 4 CYCLES (CYCLES 1 TO 4)
     Route: 042
     Dates: start: 20111108, end: 20111220
  6. PACLITAXEL [Suspect]
     Indication: BREAST CANCER
     Dosage: OVER 60 MIN, WEEKLY X 12 DOSES, TOTAL DOSE : 290 MG
     Route: 042
     Dates: start: 20120103
  7. KLOR-CON [Concomitant]
  8. TRAVATAN Z [Concomitant]
  9. TRUSOPT [Concomitant]
  10. ATIVAN [Concomitant]
  11. METOPROLOL TARTRATE [Concomitant]
  12. TRAZODONE [Concomitant]

REACTIONS (4)
  - Splenic infarction [Not Recovered/Not Resolved]
  - Sepsis [Not Recovered/Not Resolved]
  - Left ventricular dysfunction [Unknown]
  - Cardiac failure [Fatal]
